FAERS Safety Report 7676130-8 (Version None)
Quarter: 2011Q3

REPORT INFORMATION
  Report Type: 
  Country: None (occurrence: None)
  Receive Date: 20110805
  Receipt Date: 20110729
  Transmission Date: 20111222
  Serious: Yes (Death)
  Sender: FDA-Public Use
  Company Number: 201110963

PATIENT
  Sex: Female

DRUGS (4)
  1. DILAUDID [Concomitant]
  2. LIORESAL [Suspect]
     Indication: MUSCLE SPASTICITY
     Dosage: UNK MCG, DAILY, INTRATHECAL
     Route: 037
  3. CLONIDINE [Concomitant]
  4. BUPIVACAINE HCL [Concomitant]

REACTIONS (1)
  - DEATH [None]
